FAERS Safety Report 11480809 (Version 1)
Quarter: 2015Q3

REPORT INFORMATION
  Report Type: Spontaneous
  Country: DE (occurrence: DE)
  Receive Date: 20150909
  Receipt Date: 20150909
  Transmission Date: 20151125
  Serious: Yes (Other)
  Sender: FDA-Public Use
  Company Number: DE-HQ SPECIALTY-DE-2015INT000530

PATIENT

DRUGS (3)
  1. TENIPOSIDE. [Suspect]
     Active Substance: TENIPOSIDE
     Indication: GLIOMA
     Dosage: UNK
  2. PEGFILGRASTIM [Suspect]
     Active Substance: PEGFILGRASTIM
     Indication: PROPHYLAXIS
     Dosage: UNK
  3. NITROSOUREAS [Suspect]
     Active Substance: UNSPECIFIED INGREDIENT
     Indication: GLIOMA
     Dosage: UNK

REACTIONS (1)
  - Febrile neutropenia [Unknown]
